FAERS Safety Report 9209625 (Version 1)
Quarter: 2013Q1

REPORT INFORMATION
  Report Type: Spontaneous
  Country: US (occurrence: None)
  Receive Date: 20120820
  Receipt Date: 20120820
  Transmission Date: 20140127
  Serious: No
  Sender: FDA-Public Use
  Company Number: 1000030491

PATIENT
  Age: 63 Year
  Sex: Female

DRUGS (2)
  1. VIIBRYD [Suspect]
     Indication: DEPRESSION
     Route: 048
     Dates: start: 201203, end: 201203
  2. LAMICTAL(LAMOTRIGINE)(LAMOTRIGINE) [Concomitant]

REACTIONS (3)
  - Muscle twitching [None]
  - Paraesthesia [None]
  - Pain in extremity [None]
